FAERS Safety Report 6140333-4 (Version None)
Quarter: 2009Q2

REPORT INFORMATION
  Report Type: 
  Country: None (occurrence: None)
  Receive Date: 20090401
  Receipt Date: 20090320
  Transmission Date: 20091009
  Serious: No
  Sender: FDA-Public Use
  Company Number: CH-ELI_LILLY_AND_COMPANY-CH200903001568

PATIENT
  Age: 69 Year
  Sex: Female
  Weight: 48 kg

DRUGS (3)
  1. CYMBALTA [Suspect]
     Indication: DEPRESSION
     Dosage: 30 MG, DAILY (1/D)
     Route: 048
     Dates: start: 20081216, end: 20081222
  2. CYMBALTA [Suspect]
     Dosage: 60 MG, DAILY (1/D)
     Route: 048
     Dates: start: 20081223
  3. REMERON [Concomitant]
     Indication: SLEEP DISORDER DUE TO A GENERAL MEDICAL CONDITION
     Dosage: 15 MG, DAILY (1/D)
     Route: 048
     Dates: start: 20081205, end: 20090115

REACTIONS (2)
  - HEPATIC ENZYME INCREASED [None]
  - HEPATIC PAIN [None]
